FAERS Safety Report 11149602 (Version 3)
Quarter: 2015Q3

REPORT INFORMATION
  Report Type: Spontaneous
  Country: FR (occurrence: FR)
  Receive Date: 20150529
  Receipt Date: 20150922
  Transmission Date: 20151125
  Serious: Yes (Other)
  Sender: FDA-Public Use
  Company Number: FR-SA-2015SA072640

PATIENT
  Age: 57 Year
  Sex: Female
  Weight: 70 kg

DRUGS (2)
  1. AUBAGIO [Suspect]
     Active Substance: TERIFLUNOMIDE
     Indication: MULTIPLE SCLEROSIS
     Route: 048
     Dates: start: 20150107
  2. EPITOMAX [Concomitant]
     Active Substance: TOPIRAMATE
     Indication: MIGRAINE
     Route: 048

REACTIONS (1)
  - Psoriatic arthropathy [Recovering/Resolving]

NARRATIVE: CASE EVENT DATE: 201502
